FAERS Safety Report 13486526 (Version 3)
Quarter: 2017Q2

REPORT INFORMATION
  Report Type: Spontaneous
  Country: US (occurrence: US)
  Receive Date: 20170426
  Receipt Date: 20170516
  Transmission Date: 20170830
  Serious: No
  Sender: FDA-Public Use
  Company Number: US-ASTRAZENECA-2017SE41568

PATIENT
  Age: 915 Month
  Sex: Female

DRUGS (2)
  1. BYDUREON [Suspect]
     Active Substance: EXENATIDE
     Indication: DIABETES MELLITUS
     Route: 065
  2. BYDUREON [Suspect]
     Active Substance: EXENATIDE
     Indication: DIABETES MELLITUS
     Route: 065
     Dates: start: 20170410

REACTIONS (5)
  - Urticaria [Recovering/Resolving]
  - Drug hypersensitivity [Unknown]
  - Injury associated with device [Unknown]
  - Histrionic personality disorder [Unknown]
  - Needle issue [Unknown]

NARRATIVE: CASE EVENT DATE: 201704
